FAERS Safety Report 6057992-7 (Version None)
Quarter: 2009Q1

REPORT INFORMATION
  Report Type: 
  Country: None (occurrence: None)
  Receive Date: 20090127
  Receipt Date: 20090115
  Transmission Date: 20090719
  Serious: Yes (Hospitalization, Other)
  Sender: FDA-Public Use
  Company Number: GXKR2009US00829

PATIENT
  Age: 44 Year
  Sex: Female

DRUGS (6)
  1. ISONIAZID [Suspect]
     Indication: ACID FAST BACILLI INFECTION
  2. ETHAMBUTOL HYDROCHLORIDE [Suspect]
     Indication: ACID FAST BACILLI INFECTION
  3. AZITHROMYCIN [Suspect]
     Indication: ACID FAST BACILLI INFECTION
  4. PREDNISONE [Suspect]
     Indication: IMMUNE RECONSTITUTION SYNDROME
  5. PYRAZINAMIDE [Suspect]
     Indication: ACID FAST BACILLI INFECTION
  6. MORPHINE [Concomitant]

REACTIONS (5)
  - ILEUS [None]
  - INTESTINAL PERFORATION [None]
  - MYCOBACTERIUM AVIUM COMPLEX INFECTION [None]
  - PERITONITIS [None]
  - SMALL INTESTINAL OBSTRUCTION [None]
